FAERS Safety Report 11957730 (Version 2)
Quarter: 2016Q1

REPORT INFORMATION
  Report Type: Spontaneous
  Country: RU (occurrence: RU)
  Receive Date: 20160126
  Receipt Date: 20160205
  Transmission Date: 20160526
  Serious: Yes (Death, Hospitalization)
  Sender: FDA-Public Use
  Company Number: RU-ABBVIE-15P-251-1501687-00

PATIENT
  Age: 48 Year
  Sex: Male

DRUGS (3)
  1. METFORMIN [Concomitant]
     Active Substance: METFORMIN HYDROCHLORIDE
     Indication: NON-ALCOHOLIC STEATOHEPATITIS
     Route: 048
     Dates: start: 20130820
  2. RIBAVIRIN. [Concomitant]
     Active Substance: RIBAVIRIN
     Indication: CHRONIC HEPATITIS C
     Dates: start: 20151005
  3. VIEKIRA PAK [Suspect]
     Active Substance: DASABUVIR\OMBITASVIR\PARITAPREVIR\RITONAVIR
     Indication: CHRONIC HEPATITIS C
     Dosage: DASABUVIR 1TAB250 MG 2X A DAY OMB 12.5 MG/PAR75MG/RIT50MG 2TAB1X A DAY
     Route: 048
     Dates: start: 20151005, end: 20151130

REACTIONS (9)
  - Depression [Recovered/Resolved]
  - Headache [Recovered/Resolved]
  - Cardiopulmonary failure [Recovered/Resolved]
  - Encephalopathy [Recovering/Resolving]
  - Iron deficiency anaemia [Unknown]
  - Death [Fatal]
  - Pneumonia [Recovered/Resolved]
  - Tachycardia [Recovering/Resolving]
  - Asthenia [Recovered/Resolved]

NARRATIVE: CASE EVENT DATE: 20151030
